FAERS Safety Report 5204124-0 (Version None)
Quarter: 2007Q1

REPORT INFORMATION
  Report Type: 
  Country: None (occurrence: None)
  Receive Date: 20070110
  Receipt Date: 20051205
  Transmission Date: 20070707
  Serious: No
  Sender: FDA-Public Use
  Company Number: US-BRISTOL-MYERS SQUIBB COMPANY-13203716

PATIENT
  Age: 5 Decade
  Sex: Female

DRUGS (3)
  1. ABILIFY [Suspect]
     Indication: SCHIZOPHRENIA
     Dosage: INITIATED AT 5 MG DAILY AND INCREASED TO 15 MG DAILY OVER 2 WEEKS
     Route: 048
  2. RISPERDAL [Concomitant]
  3. PROLIXIN [Concomitant]

REACTIONS (2)
  - HEADACHE [None]
  - HYPERTENSION [None]
